FAERS Safety Report 16379102 (Version 1)
Quarter: 2019Q2

REPORT INFORMATION
  Report Type: Spontaneous
  Country: IT (occurrence: IT)
  Receive Date: 20190531
  Receipt Date: 20190531
  Transmission Date: 20190711
  Serious: Yes (Other)
  Sender: FDA-Public Use
  Company Number: IT-MYLANLABS-2019M1050960

PATIENT
  Age: 81 Year
  Sex: Female

DRUGS (1)
  1. RAMIPRIL. [Suspect]
     Active Substance: RAMIPRIL
     Indication: PRODUCT USED FOR UNKNOWN INDICATION
     Dosage: 5 MG, QD (ONE TABLET IN MORNING)
     Route: 048

REACTIONS (4)
  - Asthenia [Unknown]
  - Peripheral swelling [Not Recovered/Not Resolved]
  - Dysentery [Unknown]
  - Cough [Unknown]
